FAERS Safety Report 5614195-5 (Version None)
Quarter: 2008Q1

REPORT INFORMATION
  Report Type: 
  Country: None (occurrence: None)
  Receive Date: 20080205
  Receipt Date: 20080201
  Transmission Date: 20080703
  Serious: Yes (Death, Life-Threatening, Hospitalization)
  Sender: FDA-Public Use
  Company Number: D0055994A

PATIENT
  Age: 64 Year
  Sex: Female

DRUGS (12)
  1. VIANI FORTE [Suspect]
     Indication: RESPIRATORY FAILURE
     Dosage: 1PUFF TWICE PER DAY
     Route: 055
     Dates: start: 20050120
  2. SPIRIVA [Suspect]
     Indication: RESPIRATORY FAILURE
     Route: 055
     Dates: start: 20050120
  3. SALMETEROL [Concomitant]
     Indication: RESPIRATORY FAILURE
     Dosage: 2UNIT TWICE PER DAY
     Route: 055
     Dates: start: 20041126, end: 20050120
  4. DILTIAZEM RETARD [Concomitant]
     Indication: TACHYCARDIA
     Dosage: 210MG PER DAY
     Route: 048
     Dates: start: 20041126, end: 20050211
  5. PREDNISOLONE [Concomitant]
     Indication: ALVEOLITIS
     Route: 048
     Dates: start: 20040909
  6. TORSEMIDE [Concomitant]
     Indication: HYPERTENSION
     Dosage: 10MG IN THE MORNING
     Route: 048
     Dates: start: 20040910
  7. SEREVENT [Concomitant]
     Indication: RESPIRATORY FAILURE
     Route: 055
     Dates: start: 20050120, end: 20050120
  8. ALBUTEROL [Concomitant]
     Indication: RESPIRATORY FAILURE
     Route: 055
     Dates: start: 20050120
  9. CALCIUM GLUCONATE [Concomitant]
     Route: 048
     Dates: start: 20050121
  10. CIPRO [Concomitant]
     Indication: INFECTION PROPHYLAXIS
     Dosage: 500MG TWICE PER DAY
     Route: 048
     Dates: start: 20050211
  11. ZYLORIC [Concomitant]
     Indication: HYPERURICAEMIA
     Dosage: 300MG PER DAY
     Route: 048
     Dates: start: 20050211
  12. HYDROXYUREA [Concomitant]
     Indication: CHRONIC MYELOID LEUKAEMIA
     Dosage: 3G PER DAY
     Route: 048
     Dates: start: 20050212

REACTIONS (11)
  - BLISTER [None]
  - CHRONIC MYELOID LEUKAEMIA [None]
  - CONJUNCTIVITIS [None]
  - GENITAL EROSION [None]
  - HYPERURICAEMIA [None]
  - LIP EROSION [None]
  - NIKOLSKY'S SIGN [None]
  - ORAL HERPES [None]
  - ORAL MUCOSA EROSION [None]
  - RASH MACULAR [None]
  - TOXIC EPIDERMAL NECROLYSIS [None]
